FAERS Safety Report 20371777 (Version 2)
Quarter: 2023Q2

REPORT INFORMATION
  Report Type: Spontaneous
  Country: HU (occurrence: HU)
  Receive Date: 20220124
  Receipt Date: 20230505
  Transmission Date: 20230722
  Serious: Yes (Life-Threatening, Hospitalization)
  Sender: FDA-Public Use
  Company Number: HU-TAKEDA-2019TEU008573AA

PATIENT
  Age: 66 Year
  Sex: Female

DRUGS (30)
  1. HUMAN IMMUNOGLOBULIN G [Suspect]
     Active Substance: HUMAN IMMUNOGLOBULIN G
     Indication: Product used for unknown indication
     Dosage: UNK
     Route: 065
  2. FOLIC ACID\IRON POLYMALTOSE [Suspect]
     Active Substance: FOLIC ACID\IRON POLYMALTOSE
     Indication: Iron deficiency anaemia
     Dosage: 100 MILLIGRAM, BID
     Route: 048
     Dates: start: 20181220, end: 20190116
  3. FOLIC ACID\IRON POLYMALTOSE [Suspect]
     Active Substance: FOLIC ACID\IRON POLYMALTOSE
     Dosage: 2 DOSAGE FORM
     Route: 048
     Dates: start: 20181220, end: 20190116
  4. FERINJECT [Suspect]
     Active Substance: FERRIC CARBOXYMALTOSE
     Indication: Product used for unknown indication
     Dosage: UNK
     Route: 042
  5. VENOFER [Suspect]
     Active Substance: IRON SUCROSE
     Indication: Product used for unknown indication
     Dosage: UNK
     Route: 042
  6. ASPIRIN [Suspect]
     Active Substance: ASPIRIN
     Indication: Product used for unknown indication
     Dosage: 100 MILLIGRAM, QD
     Route: 048
     Dates: start: 20181109, end: 20181119
  7. ASPIRIN [Suspect]
     Active Substance: ASPIRIN
     Dosage: 1100 MILLIGRAM
     Route: 065
  8. PENTAGLOBIN [Suspect]
     Active Substance: HUMAN IMMUNOGLOBULIN G
     Indication: Product used for unknown indication
     Dosage: 500 MILLIGRAM/KILOGRAM
     Route: 042
     Dates: start: 20181204, end: 20181207
  9. METRONIDAZOLE [Suspect]
     Active Substance: METRONIDAZOLE
     Indication: Product used for unknown indication
     Dosage: 1000 MILLIGRAM, QD
     Route: 042
  10. CLARITHROMYCIN [Suspect]
     Active Substance: CLARITHROMYCIN
     Indication: Product used for unknown indication
     Dosage: 1000 MILLIGRAM
     Route: 048
     Dates: start: 20181120, end: 20181123
  11. METHYLPREDNISOLONE SODIUM SUCCINATE [Suspect]
     Active Substance: METHYLPREDNISOLONE SODIUM SUCCINATE
     Indication: Rash
     Dosage: 20 MILLIGRAM, QD
     Route: 048
     Dates: start: 20181114
  12. METHYLPREDNISOLONE SODIUM SUCCINATE [Suspect]
     Active Substance: METHYLPREDNISOLONE SODIUM SUCCINATE
     Dosage: 80 MILLIGRAM
     Route: 050
     Dates: start: 20181120
  13. METHYLPREDNISOLONE SODIUM SUCCINATE [Suspect]
     Active Substance: METHYLPREDNISOLONE SODIUM SUCCINATE
     Dosage: 125 MILLIGRAM
     Route: 050
     Dates: start: 20181207
  14. METHYLPREDNISOLONE SODIUM SUCCINATE [Suspect]
     Active Substance: METHYLPREDNISOLONE SODIUM SUCCINATE
     Dosage: 60 MILLIGRAM, QD
     Route: 065
  15. METHYLPREDNISOLONE SODIUM SUCCINATE [Suspect]
     Active Substance: METHYLPREDNISOLONE SODIUM SUCCINATE
     Dosage: UNK
     Route: 050
     Dates: end: 20190121
  16. MEROPENEM [Suspect]
     Active Substance: MEROPENEM
     Indication: Product used for unknown indication
     Dosage: 1000 MILLIGRAM
     Route: 065
     Dates: start: 20181225, end: 20181228
  17. TEICOPLANIN [Suspect]
     Active Substance: TEICOPLANIN
     Indication: Product used for unknown indication
     Dosage: 800 MILLIGRAM
     Route: 042
     Dates: start: 20181222, end: 20181228
  18. MOXIFLOXACIN [Suspect]
     Active Substance: MOXIFLOXACIN
     Indication: Product used for unknown indication
     Dosage: 400 MILLIGRAM, QD
     Route: 042
     Dates: start: 20181123, end: 20181127
  19. MOXIFLOXACIN [Suspect]
     Active Substance: MOXIFLOXACIN
     Dosage: 2000 MILLIGRAM
     Route: 065
  20. CEFTRIAXONE [Suspect]
     Active Substance: CEFTRIAXONE
     Indication: Product used for unknown indication
     Dosage: 2 GRAM, QD
     Route: 042
     Dates: start: 20181203, end: 20181226
  21. CEFTRIAXONE [Suspect]
     Active Substance: CEFTRIAXONE
     Dosage: 36 MILLIGRAM
     Route: 065
  22. FOLIC ACID [Suspect]
     Active Substance: FOLIC ACID
     Indication: Iron deficiency anaemia
     Dosage: UNK
     Route: 065
  23. FOLIC ACID [Suspect]
     Active Substance: FOLIC ACID
     Dosage: 2 DOSAGE FORM
     Route: 048
  24. VANCOMYCIN [Suspect]
     Active Substance: VANCOMYCIN
     Indication: Product used for unknown indication
     Dosage: 500 MILLIGRAM, QD
     Route: 042
     Dates: start: 20181203, end: 20181213
  25. VANCOMYCIN [Suspect]
     Active Substance: VANCOMYCIN
     Dosage: 5500 MILLIGRAM
     Route: 065
  26. IRON [Suspect]
     Active Substance: IRON
     Indication: Product used for unknown indication
     Dosage: UNK
     Route: 065
  27. METHYLPREDNISOLONE [Suspect]
     Active Substance: METHYLPREDNISOLONE
     Indication: Rash
     Dosage: 20 MILLIGRAM, QD
     Route: 048
     Dates: start: 20181114
  28. METHYLPREDNISOLONE [Suspect]
     Active Substance: METHYLPREDNISOLONE
     Dosage: 80 MILLIGRAM
     Route: 050
     Dates: start: 20181120
  29. METHYLPREDNISOLONE [Suspect]
     Active Substance: METHYLPREDNISOLONE
     Dosage: UNK
     Route: 065
     Dates: start: 20190121
  30. METHYLPREDNISOLONE [Suspect]
     Active Substance: METHYLPREDNISOLONE
     Dosage: 60 MILLIGRAM, QD
     Route: 065

REACTIONS (6)
  - Disease progression [Unknown]
  - Enterococcal infection [Recovered/Resolved]
  - Skin ulcer [Recovered/Resolved]
  - Stenotrophomonas infection [Recovered/Resolved]
  - Acinetobacter infection [Recovered/Resolved]
  - Wound infection bacterial [Recovered/Resolved]

NARRATIVE: CASE EVENT DATE: 20181220
